FAERS Safety Report 4475113-9 (Version None)
Quarter: 2004Q3

REPORT INFORMATION
  Report Type: 
  Country: None (occurrence: None)
  Receive Date: 20040923
  Receipt Date: 20040809
  Transmission Date: 20050211
  Serious: No
  Sender: FDA-Public Use
  Company Number: USA040875090

PATIENT
  Age: 71 Year
  Sex: Female

DRUGS (9)
  1. FORTEO [Suspect]
     Indication: OSTEOPOROSIS
     Dates: start: 20040730
  2. SYNTHROID [Concomitant]
  3. CELEBREX [Concomitant]
  4. ZOLOFT [Concomitant]
  5. DILANTIN [Concomitant]
  6. PHENERGAN [Concomitant]
  7. DARVOCET-N 100 [Concomitant]
  8. MULTIVITAMIN [Concomitant]
  9. CALCIUM CARBONATE [Concomitant]

REACTIONS (2)
  - BURNING SENSATION [None]
  - NIGHT SWEATS [None]
